FAERS Safety Report 5595556-X (Version None)
Quarter: 2008Q1

REPORT INFORMATION
  Report Type: 
  Country: None (occurrence: None)
  Receive Date: 20080118
  Receipt Date: 20080107
  Transmission Date: 20080703
  Serious: Yes (Other)
  Sender: FDA-Public Use
  Company Number: US-ELI_LILLY_AND_COMPANY-US200801001275

PATIENT
  Sex: Female

DRUGS (1)
  1. FORTEO [Suspect]
     Indication: OSTEOPOROSIS
     Dates: start: 20070201

REACTIONS (8)
  - BASAL CELL CARCINOMA [None]
  - FALL [None]
  - MELANOCYTIC NAEVUS [None]
  - NEOPLASM SKIN [None]
  - SKIN CANCER [None]
  - SQUAMOUS CELL CARCINOMA OF SKIN [None]
  - STAPHYLOCOCCAL INFECTION [None]
  - TOOTH EXTRACTION [None]
